FAERS Safety Report 7310400-8 (Version None)
Quarter: 2011Q1

REPORT INFORMATION
  Report Type: 
  Country: None (occurrence: None)
  Receive Date: 20110224
  Receipt Date: 20100713
  Transmission Date: 20110831
  Serious: No
  Sender: FDA-Public Use
  Company Number: US-BRISTOL-MYERS SQUIBB COMPANY-15197494

PATIENT

DRUGS (1)
  1. METFORMIN HCL [Suspect]

REACTIONS (1)
  - ADVERSE EVENT [None]
